FAERS Safety Report 15993670 (Version 1)
Quarter: 2019Q1

REPORT INFORMATION
  Report Type: Spontaneous
  Country: GB (occurrence: GB)
  Receive Date: 20190222
  Receipt Date: 20190222
  Transmission Date: 20190418
  Serious: Yes (Other)
  Sender: FDA-Public Use
  Company Number: GB-TEVA-2019-GB-1015853

PATIENT
  Sex: Female

DRUGS (4)
  1. PREDNISOLONE 5 MG [Suspect]
     Active Substance: PREDNISOLONE
     Route: 065
  2. VALGANCICLOVIR 450 MG [Concomitant]
     Route: 065
  3. MYFENAX [Suspect]
     Active Substance: MYCOPHENOLATE MOFETIL
     Route: 065
  4. ADOPORT 1MG [Concomitant]
     Route: 065

REACTIONS (1)
  - Lower respiratory tract infection [Unknown]
